FAERS Safety Report 16870224 (Version 2)
Quarter: 2019Q4

REPORT INFORMATION
  Report Type: Report from Study
  Country: US (occurrence: US)
  Receive Date: 20190930
  Receipt Date: 20191105
  Transmission Date: 20200122
  Serious: No
  Sender: FDA-Public Use
  Company Number: US-INCYTE CORPORATION-2016IN007097

PATIENT

DRUGS (9)
  1. ERYTHROMYCIN. [Concomitant]
     Active Substance: ERYTHROMYCIN
     Indication: PROPHYLAXIS
     Dosage: 1 APPLICATION, TID
     Route: 065
     Dates: start: 20110606, end: 2015
  2. MULTIVITAMIN [Concomitant]
     Active Substance: VITAMINS
     Indication: NUTRITIONAL SUPPLEMENTATION
     Dosage: 1 DF, QD
     Route: 048
     Dates: start: 20151009
  3. VITAMIN D                          /00107901/ [Concomitant]
     Active Substance: ERGOCALCIFEROL
     Indication: VITAMIN D DECREASED
     Dosage: 400 MG, QD
     Route: 065
     Dates: start: 200706
  4. JAKAFI [Suspect]
     Active Substance: RUXOLITINIB
     Indication: POLYCYTHAEMIA VERA
     Dosage: 20 MG, QD X 1 WEEK
     Route: 048
     Dates: start: 201605, end: 201605
  5. JAKAFI [Suspect]
     Active Substance: RUXOLITINIB
     Dosage: 20 MG, BID
     Route: 048
     Dates: start: 201605, end: 20161017
  6. ASPIRIN                            /00002701/ [Concomitant]
     Active Substance: ASPIRIN
     Indication: POLYCYTHAEMIA VERA
     Dosage: 81 MG, QD
     Route: 065
     Dates: start: 20040205
  7. HYDREA [Concomitant]
     Active Substance: HYDROXYUREA
     Indication: POLYCYTHAEMIA VERA
     Dosage: 500 MG, BID (4 DAYS/WEEK)
     Route: 065
     Dates: start: 20120419, end: 201605
  8. HYDREA [Concomitant]
     Active Substance: HYDROXYUREA
     Dosage: 500 MG, TID (3 DAYS/WEEK)
     Route: 065
     Dates: start: 20120419, end: 201605
  9. JAKAFI [Suspect]
     Active Substance: RUXOLITINIB
     Dosage: 20 MG, BID, MWF, QD OTHER DAYS
     Route: 048
     Dates: start: 20161018

REACTIONS (4)
  - Upper respiratory tract infection [Recovered/Resolved]
  - Splenomegaly [Recovered/Resolved]
  - Ear infection [Not Recovered/Not Resolved]
  - Haematocrit decreased [Recovered/Resolved]

NARRATIVE: CASE EVENT DATE: 20161018
